FAERS Safety Report 4745068-8 (Version None)
Quarter: 2005Q3

REPORT INFORMATION
  Report Type: 
  Country: None (occurrence: None)
  Receive Date: 20050815
  Receipt Date: 20050805
  Transmission Date: 20060218
  Serious: Yes (Hospitalization)
  Sender: FDA-Public Use
  Company Number: 200516100US

PATIENT
  Sex: Male

DRUGS (7)
  1. LANTUS [Suspect]
     Indication: DIABETES MELLITUS
     Dosage: DOSE UNIT: UNITS
     Route: 058
  2. OPTICLIK (INSULIN INJECTION PEN) [Suspect]
     Dosage: DOSE: UNK
     Dates: start: 20050729
  3. GLYBURIDE [Concomitant]
     Dosage: DOSE: UNK
  4. METFORMIN [Concomitant]
  5. QUININE SULFATE [Concomitant]
     Dosage: DOSE: UNK
  6. LISINOPRIL [Concomitant]
     Dosage: DOSE: UNK
  7. ASPIRIN [Concomitant]
     Dosage: DOSE: UNK

REACTIONS (5)
  - CHILLS [None]
  - DEHYDRATION [None]
  - FEELING HOT [None]
  - HEAT EXHAUSTION [None]
  - RENAL IMPAIRMENT [None]
